FAERS Safety Report 9354040 (Version 1)
Quarter: 2013Q2

REPORT INFORMATION
  Report Type: Spontaneous
  Country: US (occurrence: US)
  Receive Date: 20130618
  Receipt Date: 20130618
  Transmission Date: 20140414
  Serious: No
  Sender: FDA-Public Use
  Company Number: US-TEVA-390132USA

PATIENT
  Sex: Female

DRUGS (1)
  1. CISPLATIN [Suspect]
     Dosage: 100 MG/100 ML

REACTIONS (3)
  - Lung disorder [Unknown]
  - Accidental exposure to product [Unknown]
  - Respiratory disorder [Unknown]
